FAERS Safety Report 5647686-1 (Version None)
Quarter: 2008Q1

REPORT INFORMATION
  Report Type: 
  Country: None (occurrence: None)
  Receive Date: 20080303
  Receipt Date: 20080221
  Transmission Date: 20080703
  Serious: Yes (Death)
  Sender: FDA-Public Use
  Company Number: US-PFIZER INC-2007103530

PATIENT
  Sex: Female

DRUGS (2)
  1. VFEND [Suspect]
     Indication: ACUTE LYMPHOCYTIC LEUKAEMIA
  2. VFEND [Suspect]
     Indication: PNEUMONIA FUNGAL

REACTIONS (1)
  - ACUTE LYMPHOCYTIC LEUKAEMIA [None]
